FAERS Safety Report 6738549-9 (Version None)
Quarter: 2010Q2

REPORT INFORMATION
  Report Type: 
  Country: None (occurrence: None)
  Receive Date: 20100524
  Receipt Date: 20100513
  Transmission Date: 20101027
  Serious: Yes (Hospitalization)
  Sender: FDA-Public Use
  Company Number: US-BAXTER-2010BH013106

PATIENT
  Sex: Female

DRUGS (3)
  1. ENDOXAN BAXTER [Suspect]
     Indication: BREAST CANCER
     Route: 042
  2. TAXOTERE [Suspect]
     Indication: BREAST CANCER
     Route: 041
  3. DEXAMETHASONE [Concomitant]
     Indication: PREMEDICATION
     Route: 042

REACTIONS (3)
  - OEDEMA [None]
  - OEDEMA PERIPHERAL [None]
  - SKIN TOXICITY [None]
